FAERS Safety Report 8329161 (Version 2)
Quarter: 2012Q4

REPORT INFORMATION
  Report Type: 
  Country: US (occurrence: US)
  Receive Date: 20120110
  Receipt Date: 20121207
  Transmission Date: 20130627
  Serious: Yes (Hospitalization)
  Sender: FDA-Public Use
  Company Number: US-GLAXOSMITHKLINE-A0814940A

PATIENT
  Age: 54 Year
  Sex: Male

DRUGS (5)
  1. AVANDIA [Suspect]
     Indication: DIABETES MELLITUS
     Dosage: 8MG Per day
     Route: 048
     Dates: start: 20020905, end: 200612
  2. LIPITOR [Concomitant]
  3. ALTACE [Concomitant]
  4. COREG [Concomitant]
  5. GLUCOTROL [Concomitant]

REACTIONS (1)
  - Acute myocardial infarction [Unknown]
